FAERS Safety Report 9333632 (Version 2)
Quarter: 2013Q3

REPORT INFORMATION
  Report Type: Report from Study
  Country: JP (occurrence: JP)
  Receive Date: 20130606
  Receipt Date: 20130812
  Transmission Date: 20140515
  Serious: Yes (Death)
  Sender: FDA-Public Use
  Company Number: JP-JNJFOC-20130406124

PATIENT
  Age: 74 Year
  Sex: Female
  Weight: 45 kg

DRUGS (13)
  1. ONEDURO [Suspect]
     Indication: CANCER PAIN
     Route: 062
     Dates: start: 20121113, end: 20121120
  2. FENTANYL CITRATE [Suspect]
     Indication: CANCER PAIN
     Dosage: 0.5 ML/H AS RESCUE MEDICATION
     Route: 058
  3. FENTANYL CITRATE [Suspect]
     Indication: CANCER PAIN
     Dosage: AS RESCUE DOSE
     Route: 058
     Dates: start: 20121120
  4. TRAMAL [Concomitant]
     Indication: CANCER PAIN
     Dosage: AS RESCUE DOSE
     Route: 065
     Dates: start: 20121120, end: 20121120
  5. TRAMAL [Concomitant]
     Indication: CANCER PAIN
     Dosage: AS RESCUE DOSE
     Route: 065
     Dates: start: 20121118, end: 20121118
  6. KN NO. 3 [Concomitant]
     Indication: EATING DISORDER
     Route: 065
  7. RINDERON [Concomitant]
     Indication: MALIGNANT ASCITES
     Route: 065
  8. ROPION [Concomitant]
     Indication: MALIGNANT ASCITES
     Route: 065
  9. XYLOCAINE [Concomitant]
     Indication: CANCER PAIN
     Route: 042
  10. OMEPRAL [Concomitant]
     Indication: GASTRIC ULCER
     Route: 065
  11. VITAMIN C [Concomitant]
     Indication: EATING DISORDER
     Route: 065
  12. PEMIROC (HEPARIN SODIUM) [Concomitant]
     Indication: THROMBOSIS PROPHYLAXIS
     Dosage: AS NEEDED
     Route: 065
  13. VITAMEDIN [Concomitant]
     Indication: EATING DISORDER
     Route: 042

REACTIONS (3)
  - Pancreatic carcinoma [Fatal]
  - Drug intolerance [Fatal]
  - Incorrect route of drug administration [Unknown]
